FAERS Safety Report 16025048 (Version 2)
Quarter: 2019Q1

REPORT INFORMATION
  Report Type: Spontaneous
  Country: US (occurrence: US)
  Receive Date: 20190301
  Receipt Date: 20190313
  Transmission Date: 20190418
  Serious: No
  Sender: FDA-Public Use
  Company Number: US-SA-2019SA055395

PATIENT

DRUGS (1)
  1. ALLEGRA-D 24 HOUR [Suspect]
     Active Substance: FEXOFENADINE HYDROCHLORIDE\PSEUDOEPHEDRINE HYDROCHLORIDE
     Dosage: UNK, UNK
     Route: 065

REACTIONS (5)
  - Oropharyngeal pain [Unknown]
  - Pruritus [Unknown]
  - Vomiting [Unknown]
  - Rhinorrhoea [Unknown]
  - Drug ineffective [Unknown]
